FAERS Safety Report 8116812-7 (Version None)
Quarter: 2012Q1

REPORT INFORMATION
  Report Type: 
  Country: None (occurrence: None)
  Receive Date: 20120206
  Receipt Date: 20120202
  Transmission Date: 20120608
  Serious: Yes (Death, Other)
  Sender: FDA-Public Use
  Company Number: CHPA2012CO002312

PATIENT
  Age: 21 Year
  Sex: Female

DRUGS (2)
  1. EXCEDRIN MIGRAINE CAPLETS [Suspect]
     Indication: HEADACHE
     Dosage: 2 DF, UNK
     Route: 048
     Dates: start: 20111101, end: 20111101
  2. DOLEX /DOM/ [Suspect]
     Indication: HEADACHE
     Dosage: 2 DF, UNK
     Route: 048
     Dates: start: 20111101, end: 20111101

REACTIONS (3)
  - BRAIN DEATH [None]
  - DRUG ADMINISTRATION ERROR [None]
  - SYNCOPE [None]
